FAERS Safety Report 9359903 (Version 1)
Quarter: 2013Q2

REPORT INFORMATION
  Report Type: Spontaneous
  Country: FR (occurrence: FR)
  Receive Date: 20130621
  Receipt Date: 20130621
  Transmission Date: 20140414
  Serious: Yes (Hospitalization, Disabling, Other)
  Sender: FDA-Public Use
  Company Number: FR-009507513-1306FRA004754

PATIENT
  Age: 15 Year
  Sex: Female

DRUGS (3)
  1. VARNOLINE [Suspect]
     Indication: CONTRACEPTION
     Dosage: UNK
     Route: 048
     Dates: start: 201010, end: 201101
  2. IBUPROFEN [Concomitant]
     Dosage: UNK
     Route: 048
     Dates: start: 201012, end: 201012
  3. ACETAMINOPHEN [Concomitant]
     Dosage: UNK
     Route: 048
     Dates: start: 201012, end: 201012

REACTIONS (1)
  - Retinal artery occlusion [Not Recovered/Not Resolved]
